FAERS Safety Report 6526715-7 (Version None)
Quarter: 2010Q1

REPORT INFORMATION
  Report Type: 
  Country: None (occurrence: None)
  Receive Date: 20100104
  Receipt Date: 20100104
  Transmission Date: 20100710
  Serious: Yes (Other)
  Sender: FDA-Public Use
  Company Number: None

PATIENT
  Age: 67 Year
  Sex: Female
  Weight: 99.7913 kg

DRUGS (1)
  1. ERGOCALCIFEROL [Suspect]
     Indication: VITAMIN D DEFICIENCY
     Dosage: 50,000 UNIT CAP  1 PILL/WEEK SWALLOW
     Route: 048

REACTIONS (6)
  - ASTHENIA [None]
  - BREAST SWELLING [None]
  - DIZZINESS [None]
  - INCORRECT DOSE ADMINISTERED [None]
  - MYALGIA [None]
  - OEDEMA PERIPHERAL [None]
